FAERS Safety Report 8869859 (Version 1)
Quarter: 2012Q4

REPORT INFORMATION
  Report Type: 
  Country: US (occurrence: US)
  Receive Date: 20121026
  Receipt Date: 20121026
  Transmission Date: 20130627
  Serious: No
  Sender: FDA-Public Use
  Company Number: US-AMGEN-USASP2012045902

PATIENT
  Age: 55 Year
  Sex: Female
  Weight: 65.76 kg

DRUGS (8)
  1. ENBREL [Suspect]
     Indication: PRODUCT USED FOR UNKNOWN INDICATION
     Dosage: 50 mg, qwk
     Route: 058
  2. PROAIR HFA [Concomitant]
     Dosage: UNK
  3. MOBIC [Concomitant]
     Dosage: 15 mg, UNK
  4. NEXIUM                             /01479302/ [Concomitant]
     Dosage: 40 mg, UNK
  5. ADVAIR [Concomitant]
     Dosage: Advair Disku AER 250/50
  6. FLONASE [Concomitant]
     Dosage: Flonase Spr 0.05%
  7. ALBUTEROL                          /00139501/ [Concomitant]
     Dosage: ALBUTEROL AER 90MCG
  8. PLAQUENIL                          /00072602/ [Concomitant]
     Dosage: 200 mg, UNK

REACTIONS (1)
  - Sinusitis [Unknown]
